FAERS Safety Report 10142984 (Version 1)
Quarter: 2014Q2

REPORT INFORMATION
  Report Type: Spontaneous
  Country: US (occurrence: US)
  Receive Date: 20140430
  Receipt Date: 20140430
  Transmission Date: 20141212
  Serious: No
  Sender: FDA-Public Use
  Company Number: US-BAYER-2014-063603

PATIENT
  Age: 59 Year
  Sex: Female

DRUGS (1)
  1. GADAVIST [Suspect]
     Indication: NUCLEAR MAGNETIC RESONANCE IMAGING
     Dosage: 8 CC, UNK
     Dates: start: 20140429, end: 20140429

REACTIONS (4)
  - Eye swelling [None]
  - Ocular hyperaemia [None]
  - Eye pruritus [None]
  - Urticaria [None]
